FAERS Safety Report 15354912 (Version 1)
Quarter: 2018Q3

REPORT INFORMATION
  Report Type: Spontaneous
  Country: US (occurrence: US)
  Receive Date: 20180906
  Receipt Date: 20180906
  Transmission Date: 20181010
  Serious: Yes (Hospitalization, Other)
  Sender: FDA-Public Use
  Company Number: US-REGULIS-2054670

PATIENT
  Age: 74 Year
  Sex: Female

DRUGS (17)
  1. MIDAZOLAM [Concomitant]
     Active Substance: MIDAZOLAM HYDROCHLORIDE
     Route: 042
  2. DEXAMETHASONE. [Concomitant]
     Active Substance: DEXAMETHASONE
     Route: 042
  3. NEOSTIGMINE METHYLSULFATE. [Concomitant]
     Active Substance: NEOSTIGMINE METHYLSULFATE
     Route: 042
  4. BENZODIAZEPINES NOS [Suspect]
     Active Substance: BENZODIAZEPINE
     Route: 065
  5. ROPINIROLE. [Suspect]
     Active Substance: ROPINIROLE
     Route: 065
  6. PROPOFOL. [Concomitant]
     Active Substance: PROPOFOL
     Route: 042
  7. ROCURONIUM [Concomitant]
     Active Substance: ROCURONIUM BROMIDE
     Route: 042
  8. EPHEDRINE. [Concomitant]
     Active Substance: EPHEDRINE
     Route: 042
  9. OFIRMEV [Concomitant]
     Active Substance: ACETAMINOPHEN
     Route: 042
  10. METHYLENE BLUE. [Suspect]
     Active Substance: METHYLENE BLUE
     Indication: CYSTOCELE REPAIR
     Route: 042
  11. GLYCOPYRROLATE. [Concomitant]
     Active Substance: GLYCOPYRROLATE
     Route: 042
  12. FENTANYL. [Concomitant]
     Active Substance: FENTANYL
     Route: 042
  13. ONDANSETRON [Concomitant]
     Active Substance: ONDANSETRON
     Route: 042
  14. FLUOXETINE [Suspect]
     Active Substance: FLUOXETINE HYDROCHLORIDE
     Route: 065
  15. DULOXETINE. [Suspect]
     Active Substance: DULOXETINE
     Route: 065
  16. STALEVO [Concomitant]
     Active Substance: CARBIDOPA\ENTACAPONE\LEVODOPA
     Route: 065
  17. ANTIBIOTICS NOS [Concomitant]
     Active Substance: UNSPECIFIED INGREDIENT
     Route: 065

REACTIONS (3)
  - Serotonin syndrome [Recovering/Resolving]
  - Off label use [Recovering/Resolving]
  - Drug interaction [Recovering/Resolving]
